FAERS Safety Report 18537504 (Version 1)
Quarter: 2020Q4

REPORT INFORMATION
  Report Type: Spontaneous
  Country: IT (occurrence: IT)
  Receive Date: 20201124
  Receipt Date: 20201124
  Transmission Date: 20210114
  Serious: Yes (Hospitalization, Other)
  Sender: FDA-Public Use
  Company Number: IT-AUROBINDO-AUR-APL-2017-14654

PATIENT
  Age: 11 Month
  Sex: Male
  Weight: 10 kg

DRUGS (4)
  1. PARACETAMOL [Suspect]
     Active Substance: ACETAMINOPHEN
     Dosage: 12.5 MG/KG, Q6H X 3 DAYS (ENDORECTAL)
     Route: 065
  2. PARACETAMOL [Suspect]
     Active Substance: ACETAMINOPHEN
     Dosage: 12 MILLIGRAM/HOUR IN 3 HOURS (2 ORAL DOSES AND 1 ENDORECTAL DOSE)
     Route: 065
  3. CLARITHROMYCIN. [Suspect]
     Active Substance: CLARITHROMYCIN
     Indication: UPPER RESPIRATORY TRACT INFECTION
     Dosage: 15 MILLIGRAM/KILOGRAM, ONCE A DAY FOR 7 DAYS
     Route: 065
  4. PARACETAMOL [Suspect]
     Active Substance: ACETAMINOPHEN
     Indication: PYREXIA
     Dosage: 12 MG/KG  Q4H X 7 DAYS
     Route: 048

REACTIONS (2)
  - Liver injury [Unknown]
  - Toxicity to various agents [Unknown]
